FAERS Safety Report 7721272-1 (Version None)
Quarter: 2011Q3

REPORT INFORMATION
  Report Type: 
  Country: None (occurrence: None)
  Receive Date: 20110831
  Receipt Date: 20110817
  Transmission Date: 20111222
  Serious: Yes (Other)
  Sender: FDA-Public Use
  Company Number: PHHY2011BR74381

PATIENT
  Sex: Female
  Weight: 64 kg

DRUGS (3)
  1. TENORMIN [Concomitant]
     Indication: HYPERTENSION
     Dosage: 1 DF, DAILY
     Route: 048
  2. DIOVAN HCT [Suspect]
     Indication: OCULAR HYPERTENSION
     Dosage: 160 MG OF VALS AND 25 MG OF HYD DAILY
     Route: 048
  3. PHENYTOIN [Concomitant]
     Indication: CONVULSION
     Dosage: 1 DF, DAILY
     Route: 048

REACTIONS (2)
  - BLOOD PRESSURE INCREASED [None]
  - VISUAL ACUITY REDUCED [None]
